FAERS Safety Report 17861900 (Version 2)
Quarter: 2020Q3

REPORT INFORMATION
  Report Type: Other
  Country: DE (occurrence: DE)
  Receive Date: 20200604
  Receipt Date: 20200713
  Transmission Date: 20201103
  Serious: Yes (Death, Congenital Anomaly, Other)
  Sender: FDA-Public Use
  Company Number: DE-TOPROL ACQUISITION LLC-2020-TOP-000250

PATIENT
  Age: 1 Day
  Sex: Male
  Weight: 2 kg

DRUGS (24)
  1. METOPROLOL SUCCINATE. [Suspect]
     Active Substance: METOPROLOL SUCCINATE
     Dosage: 70.75 [MG/D (47.5?0?23.75) ]
     Route: 064
  2. AZATHIOPRINE. [Suspect]
     Active Substance: AZATHIOPRINE
     Dosage: 100 MG, QD
     Route: 064
     Dates: start: 20130702, end: 20140114
  3. PROGRAF [Suspect]
     Active Substance: TACROLIMUS
     Indication: PROPHYLAXIS AGAINST TRANSPLANT REJECTION
     Dosage: 5.5 [MG/D (3?0?2.5 MG/D) ]
     Route: 064
     Dates: start: 2007
  4. COLECALCIFEROL [Concomitant]
     Active Substance: CHOLECALCIFEROL
     Indication: VITAMIN SUPPLEMENTATION
     Dosage: 20000 IU, WEEKLY
     Route: 064
     Dates: start: 2007
  5. BETAMETHASONE. [Concomitant]
     Active Substance: BETAMETHASONE
     Dosage: IN WEEK 28+0
     Route: 064
  6. PARTUSISTEN [Concomitant]
     Active Substance: FENOTEROL
     Indication: TOCOLYSIS
     Dosage: UNK
     Dates: start: 20140114, end: 20140114
  7. PROGRAF [Suspect]
     Active Substance: TACROLIMUS
     Dosage: UNK
     Route: 064
     Dates: start: 20130702, end: 20140114
  8. METHYLDOPA. [Suspect]
     Active Substance: METHYLDOPA
     Indication: RENAL HYPERTENSION
     Dosage: 250 MG, BID
     Route: 064
     Dates: start: 2010
  9. COLECALCIFEROL [Concomitant]
     Active Substance: CHOLECALCIFEROL
     Dosage: 20000 IU, WEEKLY
     Route: 064
     Dates: start: 20130702, end: 20131217
  10. AZATHIOPRINE. [Suspect]
     Active Substance: AZATHIOPRINE
     Dosage: 100 MG, QD
     Route: 064
  11. AMLODIPINE [Concomitant]
     Active Substance: AMLODIPINE BESYLATE
     Indication: RENAL HYPERTENSION
     Dosage: 7.5 MG, QD
     Route: 064
  12. BETAMETHASONE. [Concomitant]
     Active Substance: BETAMETHASONE
     Dosage: IN WEEK 25+4
     Route: 064
  13. METOPROLOL SUCCINATE. [Suspect]
     Active Substance: METOPROLOL SUCCINATE
     Indication: RENAL HYPERTENSION
     Dosage: 142.5 [MG/D (95?0?47.5) ]
     Route: 064
     Dates: start: 2012
  14. METOPROLOL SUCCINATE. [Suspect]
     Active Substance: METOPROLOL SUCCINATE
     Dosage: 70.75 [MG/D (47.5?0?23.75) ]
     Route: 064
     Dates: start: 20140114, end: 20140114
  15. LEVOTHYROXINE SODIUM. [Concomitant]
     Active Substance: LEVOTHYROXINE SODIUM
     Indication: HYPOTHYROIDISM
     Dosage: 12.5 UG BID
     Route: 064
     Dates: start: 20130702, end: 20140114
  16. METHYLDOPA. [Suspect]
     Active Substance: METHYLDOPA
     Dosage: 2 DF, QD
     Route: 064
     Dates: start: 20130702, end: 20140114
  17. FOLIC ACID. [Concomitant]
     Active Substance: FOLIC ACID
     Indication: PROPHYLAXIS OF NEURAL TUBE DEFECT
     Dosage: 0.6 MG, QD
     Route: 064
     Dates: start: 20130702, end: 20131217
  18. AMPICILLIN [Concomitant]
     Active Substance: AMPICILLIN
     Indication: ANTIBIOTIC PROPHYLAXIS
     Dosage: UNK
     Route: 064
     Dates: start: 20140114, end: 20140114
  19. LEVOTHYROXINE SODIUM. [Concomitant]
     Active Substance: LEVOTHYROXINE SODIUM
     Dosage: 25 UG BID
     Route: 064
     Dates: start: 20130702, end: 20140114
  20. METOPROLOL SUCCINATE. [Suspect]
     Active Substance: METOPROLOL SUCCINATE
     Indication: RENAL HYPERTENSION
     Dosage: 142.5 [MG/D (95?0?47.5) ]/ SINCE 2012. THERAPY PROBABLY ONGOING OR CHANGED TO BELOC ZOK MITE
     Route: 048
     Dates: start: 20130702, end: 20131217
  21. AZATHIOPRINE. [Suspect]
     Active Substance: AZATHIOPRINE
     Indication: PROPHYLAXIS AGAINST TRANSPLANT REJECTION
     Dosage: 50 MG, BID
     Route: 064
     Dates: start: 2012
  22. ADALAT [Concomitant]
     Active Substance: NIFEDIPINE
     Indication: TOCOLYSIS
     Route: 064
  23. METOPROLOL SUCCINATE. [Suspect]
     Active Substance: METOPROLOL SUCCINATE
     Dosage: UNK
     Route: 064
     Dates: start: 20130702, end: 20131217
  24. BETAMETHASONE. [Concomitant]
     Active Substance: BETAMETHASONE
     Indication: MATERNAL THERAPY TO ENHANCE FOETAL LUNG MATURITY
     Dosage: IN WEEK 25+3
     Route: 064
     Dates: start: 20140114

REACTIONS (5)
  - Polyhydramnios [Fatal]
  - Hydrops foetalis [Fatal]
  - Foetal exposure during pregnancy [Unknown]
  - Neonatal respiratory failure [Fatal]
  - Congenital cystic lung [Fatal]

NARRATIVE: CASE EVENT DATE: 20130702
